FAERS Safety Report 6113010-3 (Version None)
Quarter: 2009Q1

REPORT INFORMATION
  Report Type: 
  Country: None (occurrence: None)
  Receive Date: 20090312
  Receipt Date: 20090306
  Transmission Date: 20090719
  Serious: No
  Sender: FDA-Public Use
  Company Number: B0558421A

PATIENT
  Age: 7 Year
  Sex: Male
  Weight: 25.2 kg

DRUGS (4)
  1. RELENZA [Suspect]
     Indication: INFLUENZA
     Dosage: 10MG TWICE PER DAY
     Route: 055
     Dates: start: 20090128, end: 20090201
  2. ASVERIN [Concomitant]
     Indication: INFLUENZA
     Dosage: 69MG PER DAY
     Route: 048
     Dates: start: 20090128
  3. MUCODYNE [Concomitant]
     Indication: INFLUENZA
     Dosage: 699MG PER DAY
     Route: 048
     Dates: start: 20090128
  4. CALONAL [Concomitant]
     Indication: INFLUENZA
     Route: 048

REACTIONS (2)
  - ABNORMAL BEHAVIOUR [None]
  - DISSOCIATIVE DISORDER [None]
